FAERS Safety Report 13342551 (Version 4)
Quarter: 2018Q2

REPORT INFORMATION
  Report Type: Report from Study
  Country: US (occurrence: US)
  Receive Date: 20170316
  Receipt Date: 20180416
  Transmission Date: 20180711
  Serious: Yes (Hospitalization, Other)
  Sender: FDA-Public Use
  Company Number: US-JNJFOC-20170316740

PATIENT
  Age: 51 Year
  Sex: Male

DRUGS (13)
  1. IMBRUVICA [Suspect]
     Active Substance: IBRUTINIB
     Indication: CHRONIC LYMPHOCYTIC LEUKAEMIA
     Route: 048
     Dates: start: 20150522
  2. OXYCODONE [Suspect]
     Active Substance: OXYCODONE
     Indication: PRODUCT USED FOR UNKNOWN INDICATION
     Route: 065
  3. GABAPENTIN. [Concomitant]
     Active Substance: GABAPENTIN
  4. VALIUM [Concomitant]
     Active Substance: DIAZEPAM
  5. IMBRUVICA [Suspect]
     Active Substance: IBRUTINIB
     Indication: CHRONIC LYMPHOCYTIC LEUKAEMIA
     Route: 048
     Dates: start: 20151225
  6. IMBRUVICA [Suspect]
     Active Substance: IBRUTINIB
     Indication: WHITE BLOOD CELL COUNT INCREASED
     Route: 048
     Dates: start: 20151225
  7. IMBRUVICA [Suspect]
     Active Substance: IBRUTINIB
     Indication: WHITE BLOOD CELL COUNT INCREASED
     Route: 048
     Dates: start: 20150504
  8. IMBRUVICA [Suspect]
     Active Substance: IBRUTINIB
     Indication: CHRONIC LYMPHOCYTIC LEUKAEMIA
     Route: 048
     Dates: start: 20150504
  9. IMBRUVICA [Suspect]
     Active Substance: IBRUTINIB
     Indication: WHITE BLOOD CELL COUNT INCREASED
     Route: 048
     Dates: start: 20150522
  10. DOXYCYCLINE HYCLATE. [Concomitant]
     Active Substance: DOXYCYCLINE HYCLATE
  11. AMLODIPINE [Concomitant]
     Active Substance: AMLODIPINE BESYLATE
  12. TRAZODONE [Concomitant]
     Active Substance: TRAZODONE HYDROCHLORIDE
  13. LEXAPRO [Concomitant]
     Active Substance: ESCITALOPRAM OXALATE

REACTIONS (17)
  - Catheter site haemorrhage [Unknown]
  - Nausea [Unknown]
  - Haemorrhagic diathesis [Unknown]
  - Haemorrhage [Unknown]
  - Vomiting [Unknown]
  - Haematospermia [Unknown]
  - Renal disorder [Unknown]
  - Dehydration [Unknown]
  - Cardiac disorder [Unknown]
  - Drug withdrawal syndrome [Unknown]
  - Product use in unapproved indication [Unknown]
  - Contusion [Unknown]
  - Diabetic neuropathy [Unknown]
  - Platelet count decreased [Unknown]
  - Off label use [Unknown]
  - Internal haemorrhage [Unknown]
  - Blood glucose increased [Not Recovered/Not Resolved]

NARRATIVE: CASE EVENT DATE: 20150504
